FAERS Safety Report 4976705-0 (Version None)
Quarter: 2006Q2

REPORT INFORMATION
  Report Type: 
  Country: None (occurrence: None)
  Receive Date: 20060412
  Receipt Date: 20060328
  Transmission Date: 20061013
  Serious: Yes (Hospitalization)
  Sender: FDA-Public Use
  Company Number: WAES 0603USA04312

PATIENT
  Age: 69 Year
  Sex: Female
  Weight: 69.4003 kg

DRUGS (4)
  1. DECADRON [Suspect]
     Indication: PAIN
     Dosage: 4 MG/TID/PO
     Route: 048
     Dates: start: 20060110
  2. BLINDED THERAPY [Suspect]
     Indication: INTESTINAL FUNCTIONAL DISORDER
     Dosage: PO
     Route: 048
     Dates: start: 20060102
  3. PANTOPRAZOLE [Suspect]
     Indication: GASTRIC ULCER
     Dosage: 40 MG/DAILY/PO
     Route: 048
     Dates: start: 20050719
  4. SULINDAC [Suspect]
     Indication: OSTEOARTHRITIS
     Dosage: 200 MG/BID/PO
     Route: 048
     Dates: start: 20040501

REACTIONS (2)
  - MALLORY-WEISS SYNDROME [None]
  - REFLUX OESOPHAGITIS [None]
